FAERS Safety Report 7277129-6 (Version None)
Quarter: 2011Q1

REPORT INFORMATION
  Report Type: 
  Country: None (occurrence: None)
  Receive Date: 20110202
  Receipt Date: 20110202
  Transmission Date: 20110831
  Serious: Yes (Life-Threatening, Hospitalization, Disabling, Other)
  Sender: FDA-Public Use
  Company Number: None

PATIENT
  Sex: Female

DRUGS (1)
  1. THYROLAR-1 [Suspect]
     Indication: HYPOTHYROIDISM
     Dosage: 1 GR, 2 GR AND 3 GR 1 TAB. DAILY MOUTH
     Route: 048
     Dates: start: 19780101, end: 20100101

REACTIONS (4)
  - DIABETES MELLITUS [None]
  - NEPHROLITHIASIS [None]
  - PAIN [None]
  - PANCREATOLITHIASIS [None]
